FAERS Safety Report 8777224 (Version 3)
Quarter: 2012Q4

REPORT INFORMATION
  Report Type: 
  Country: FR (occurrence: FR)
  Receive Date: 20120911
  Receipt Date: 20121017
  Transmission Date: 20130627
  Serious: Yes (Hospitalization, Other)
  Sender: FDA-Public Use
  Company Number: FR-VERTEX PHARMACEUTICAL INC.-2012-020752

PATIENT
  Age: 63 Year
  Sex: Female

DRUGS (10)
  1. INCIVO [Suspect]
     Indication: HEPATITIS C
     Dosage: 750 mg, UNK
     Route: 048
     Dates: start: 20120726, end: 20120813
  2. PEGINTERFERON ALFA-2A [Suspect]
     Indication: HEPATITIS C
     Dosage: 180 ug, 1/1 week
     Route: 058
     Dates: start: 20120726
  3. RIBAVIRIN [Suspect]
     Indication: HEPATITIS C
     Dosage: 1000 mg, qd
     Route: 048
     Dates: start: 20120726, end: 20120813
  4. FUROSEMIDE [Suspect]
     Dosage: UNK
     Dates: start: 20120712
  5. BETAMETHASONE [Concomitant]
     Dosage: UNK
     Dates: start: 20120716
  6. MEQUITAZINE [Concomitant]
     Dosage: UNK
     Dates: start: 20120716
  7. PARACETAMOL [Concomitant]
     Dosage: UNK
     Dates: start: 20120726
  8. PARACETAMOL [Concomitant]
     Dosage: UNK
  9. SPIRONOLACTONE [Concomitant]
     Dosage: UNK
     Dates: start: 20120712
  10. SPIRONOLACTONE [Concomitant]
     Dosage: UNK
     Dates: start: 20120817

REACTIONS (7)
  - Drug-induced liver injury [Unknown]
  - Electrocardiogram T wave abnormal [Unknown]
  - Varices oesophageal [Unknown]
  - Malaise [Unknown]
  - Fatigue [Not Recovered/Not Resolved]
  - Hypokalaemia [Recovered/Resolved]
  - Hyperbilirubinaemia [None]
